FAERS Safety Report 11866686 (Version 3)
Quarter: 2016Q1

REPORT INFORMATION
  Report Type: Spontaneous
  Country: IT (occurrence: IT)
  Receive Date: 20151224
  Receipt Date: 20160121
  Transmission Date: 20160526
  Serious: Yes (Other)
  Sender: FDA-Public Use
  Company Number: IT-ACCORD-029855

PATIENT
  Age: 57 Year
  Sex: Male
  Weight: 43 kg

DRUGS (2)
  1. PACLITAXEL/PACLITAXEL LIPOSOME [Suspect]
     Active Substance: PACLITAXEL
     Indication: OESOPHAGEAL ADENOCARCINOMA
     Dosage: ALSO RECEIVED FROM 17-NOV-2014 TO 14-SEP-2015.
     Route: 042
     Dates: start: 20141117, end: 20150327
  2. CISPLATIN. [Suspect]
     Active Substance: CISPLATIN
     Indication: OESOPHAGEAL ADENOCARCINOMA
     Dosage: FROM 17-NOV-2014 TO 14-SEP-2015
     Route: 042
     Dates: start: 20141117

REACTIONS (7)
  - Dysphagia [Unknown]
  - Infusion site pain [Recovering/Resolving]
  - Infusion site swelling [Recovering/Resolving]
  - Drop attacks [Unknown]
  - Injection site extravasation [Recovering/Resolving]
  - Diarrhoea [Unknown]
  - Bone pain [Unknown]

NARRATIVE: CASE EVENT DATE: 20150126
